FAERS Safety Report 5588883-3 (Version None)
Quarter: 2008Q1

REPORT INFORMATION
  Report Type: 
  Country: None (occurrence: None)
  Receive Date: 20080111
  Receipt Date: 20080103
  Transmission Date: 20080703
  Serious: Yes (Hospitalization)
  Sender: FDA-Public Use
  Company Number: US-GILEAD-2008-0014863

PATIENT
  Sex: Female

DRUGS (4)
  1. LETAIRIS [Suspect]
     Indication: PULMONARY HYPERTENSION
     Route: 048
     Dates: start: 20070918
  2. LANOXIN [Concomitant]
     Route: 048
  3. DIOVAN [Concomitant]
     Route: 048
  4. OXYGEN [Concomitant]
     Route: 045

REACTIONS (2)
  - ACUTE RESPIRATORY FAILURE [None]
  - VENTRICULAR FAILURE [None]
